FAERS Safety Report 4455052-X (Version None)
Quarter: 2004Q3

REPORT INFORMATION
  Report Type: 
  Country: None (occurrence: None)
  Receive Date: 20040921
  Receipt Date: 20040914
  Transmission Date: 20050211
  Serious: Yes (Life-Threatening)
  Sender: FDA-Public Use
  Company Number: US-BRISTOL-MYERS SQUIBB COMPANY-12701793

PATIENT
  Age: 46 Year
  Sex: Male
  Weight: 76 kg

DRUGS (6)
  1. SUSTIVA [Suspect]
     Indication: HIV INFECTION
     Dosage: ONCE DAILY
     Route: 048
     Dates: start: 20020326
  2. BACTRIM [Concomitant]
  3. TYLENOL W/ CODEINE NO. 3 [Concomitant]
  4. NEURONTIN [Concomitant]
  5. MULTI-VITAMIN [Concomitant]
  6. CLOTRIMAZOLE [Concomitant]

REACTIONS (1)
  - LOW DENSITY LIPOPROTEIN INCREASED [None]
